FAERS Safety Report 12920894 (Version 1)
Quarter: 2016Q4

REPORT INFORMATION
  Report Type: Spontaneous
  Country: US (occurrence: US)
  Receive Date: 20161107
  Receipt Date: 20161107
  Transmission Date: 20170207
  Serious: Yes (Other)
  Sender: FDA-Public Use
  Company Number: US-ELI_LILLY_AND_COMPANY-US201608005205

PATIENT

DRUGS (2)
  1. CYMBALTA [Suspect]
     Active Substance: DULOXETINE HYDROCHLORIDE
     Indication: OSTEOARTHRITIS
  2. CYMBALTA [Suspect]
     Active Substance: DULOXETINE HYDROCHLORIDE
     Indication: FIBROMYALGIA
     Dosage: 90 MG, QD
     Route: 065
     Dates: start: 20100811

REACTIONS (15)
  - Drug withdrawal syndrome [Recovered/Resolved]
  - Fatigue [Recovered/Resolved]
  - Headache [Recovered/Resolved]
  - Affect lability [Recovered/Resolved]
  - Irritability [Recovered/Resolved]
  - Anxiety [Recovered/Resolved]
  - Suicide attempt [Unknown]
  - Nausea [Recovered/Resolved]
  - Suicidal ideation [Unknown]
  - Dysphoria [Recovered/Resolved]
  - Vertigo [Recovered/Resolved]
  - Pain [Unknown]
  - Dizziness [Recovered/Resolved]
  - Paraesthesia [Recovered/Resolved]
  - Agitation [Recovered/Resolved]
